FAERS Safety Report 19199100 (Version 1)
Quarter: 2021Q2

REPORT INFORMATION
  Report Type: Spontaneous
  Country: US (occurrence: US)
  Receive Date: 20210430
  Receipt Date: 20210430
  Transmission Date: 20210717
  Serious: Yes (Other)
  Sender: FDA-Public Use
  Company Number: US-JNJFOC-20210442178

PATIENT
  Sex: Male

DRUGS (1)
  1. SPRAVATO [Suspect]
     Active Substance: ESKETAMINE
     Indication: DEPRESSION
     Dosage: 84 MG, TOTAL 7 DOSES
     Dates: start: 20201013, end: 20210224

REACTIONS (3)
  - Product dose omission issue [Unknown]
  - Incorrect disposal of product [Unknown]
  - Drug abuse [Unknown]
